FAERS Safety Report 7528029-5 (Version None)
Quarter: 2011Q2

REPORT INFORMATION
  Report Type: 
  Country: None (occurrence: None)
  Receive Date: 20110607
  Receipt Date: 20090628
  Transmission Date: 20111010
  Serious: Yes (Other)
  Sender: FDA-Public Use
  Company Number: US-BAYER-200924395NA

PATIENT
  Age: 69 Year
  Sex: Female
  Weight: 45 kg

DRUGS (11)
  1. TRASYLOL [Suspect]
     Indication: CORONARY ARTERY BYPASS
     Dosage: INITIAL (TEST) DOSE OF 1ML
     Route: 042
     Dates: start: 20050902
  2. METOPROLOL SUCCINATE [Concomitant]
     Dosage: 100 MG/ TWICE A DAY
     Route: 048
     Dates: start: 19830101
  3. HEPARIN [Concomitant]
     Dosage: UNK
     Route: 042
     Dates: start: 20050902, end: 20050902
  4. DILANTIN [Concomitant]
     Dosage: 300 MG/DAILY
     Route: 048
     Dates: start: 19830101
  5. LASIX [Concomitant]
     Dosage: 40 MG/TWICE A DAY
     Route: 048
     Dates: start: 20050601
  6. PROTAMINE SULFATE [Concomitant]
     Dosage: 24 ML (10 MG/ML)
     Route: 042
     Dates: start: 20050902, end: 20050902
  7. COUMADIN [Concomitant]
     Dosage: 2 MG/DAILY
     Route: 048
     Dates: start: 20050828
  8. TRASYLOL [Suspect]
     Indication: COX-MAZE PROCEDURE
     Dosage: 200ML PUMP PRIME DOSE
     Route: 042
     Dates: start: 20050902, end: 20050902
  9. LISINOPRIL [Concomitant]
     Dosage: UNK
     Route: 048
     Dates: start: 20050621, end: 20050630
  10. LIPITOR [Concomitant]
     Dosage: UNK
     Route: 048
     Dates: start: 20050601
  11. RED BLOOD CELLS [Concomitant]
     Dosage: TWO UNITS
     Dates: start: 20050902

REACTIONS (10)
  - RENAL IMPAIRMENT [None]
  - STRESS [None]
  - RENAL FAILURE [None]
  - UNEVALUABLE EVENT [None]
  - FEAR OF DEATH [None]
  - RENAL INJURY [None]
  - EMOTIONAL DISTRESS [None]
  - ANXIETY [None]
  - PAIN [None]
  - FEAR [None]
